FAERS Safety Report 9785983 (Version 1)
Quarter: 2013Q4

REPORT INFORMATION
  Report Type: Spontaneous
  Country: US (occurrence: None)
  Receive Date: 20131224
  Receipt Date: 20131224
  Transmission Date: 20140711
  Serious: Yes (Other)
  Sender: FDA-Public Use
  Company Number: 2013P1022067

PATIENT
  Age: 40 Year
  Sex: Female
  Weight: 63.5 kg

DRUGS (6)
  1. MYORISAN [Suspect]
     Indication: ACNE CYSTIC
     Dates: start: 20130828, end: 20130929
  2. CLARAVIS [Suspect]
     Indication: ACNE CYSTIC
     Dates: start: 20130930, end: 20131031
  3. TOPAMAX [Concomitant]
  4. PROZAC [Concomitant]
  5. BUSPAR [Concomitant]
  6. TRAZODONE [Concomitant]

REACTIONS (3)
  - Rash [None]
  - Systemic lupus erythematosus [None]
  - Pyrexia [None]
